FAERS Safety Report 5672737-8 (Version None)
Quarter: 2008Q1

REPORT INFORMATION
  Report Type: 
  Country: None (occurrence: None)
  Receive Date: 20080319
  Receipt Date: 20070627
  Transmission Date: 20080703
  Serious: No
  Sender: FDA-Public Use
  Company Number: US-KINGPHARMUSA00001-K200700817

PATIENT

DRUGS (5)
  1. ALTACE [Suspect]
     Indication: HYPERTENSION
     Dosage: 2.5 MG, QD
     Route: 048
     Dates: start: 20040101
  2. COREG [Concomitant]
     Indication: MYOCARDIAL INFARCTION
     Dates: start: 20040101
  3. SIMVASTATIN [Concomitant]
     Indication: CARDIAC DISORDER
     Dates: start: 20040101
  4. NIASPAN [Concomitant]
     Indication: CARDIAC DISORDER
     Dates: start: 20040101
  5. ENTERIC ASPIRIN [Concomitant]
     Indication: CARDIAC DISORDER
     Dosage: 325 MG, QD
     Dates: start: 20040101

REACTIONS (3)
  - EYE HAEMORRHAGE [None]
  - HEADACHE [None]
  - THERAPEUTIC RESPONSE DECREASED [None]
